FAERS Safety Report 5480961-2 (Version None)
Quarter: 2007Q4

REPORT INFORMATION
  Report Type: 
  Country: None (occurrence: None)
  Receive Date: 20071009
  Receipt Date: 20070927
  Transmission Date: 20080405
  Serious: Yes (Hospitalization)
  Sender: FDA-Public Use
  Company Number: JP-AMGEN-US245208

PATIENT
  Sex: Male
  Weight: 44 kg

DRUGS (15)
  1. ENBREL [Suspect]
     Indication: RHEUMATOID ARTHRITIS
     Route: 058
     Dates: start: 20070701, end: 20070901
  2. MOVER [Suspect]
     Dosage: 300 MG; UNSPECIFIED FREQUENCY
     Route: 048
     Dates: start: 20060301
  3. MOVER [Suspect]
     Dates: end: 20070824
  4. ISCOTIN [Suspect]
     Route: 048
  5. ISCOTIN [Suspect]
     Route: 048
  6. RIMATIL [Suspect]
     Dosage: 100MG; UNSPECIFIED FREQUENCY
     Dates: start: 20060301
  7. RIMATIL [Suspect]
     Route: 048
     Dates: end: 20070824
  8. BONALON [Concomitant]
     Route: 048
  9. SULFASALAZINE [Concomitant]
     Dosage: 1000 MG; UNSPECIFIED FREQUENCY
     Dates: start: 20060301, end: 20070824
  10. PREDONINE [Concomitant]
     Dosage: UNKNOWN
     Dates: start: 19930101, end: 20060301
  11. PREDONINE [Concomitant]
     Dosage: 10MG; UNSPECIFIED FREQUENCY
     Dates: start: 20060301, end: 20070831
  12. PREDONINE [Concomitant]
     Dosage: 50 MG; UNSPECIFIED FREQUENCY
     Dates: start: 20070831, end: 20070911
  13. PREDONINE [Concomitant]
     Route: 048
     Dates: start: 20070911
  14. PYDOXAL [Concomitant]
  15. LANSOPRAZOLE [Concomitant]
     Route: 048

REACTIONS (1)
  - PNEUMOCYSTIS JIROVECI PNEUMONIA [None]
